FAERS Safety Report 18895557 (Version 1)
Quarter: 2021Q1

REPORT INFORMATION
  Report Type: Other
  Country: CA (occurrence: CA)
  Receive Date: 20210216
  Receipt Date: 20210216
  Transmission Date: 20210420
  Serious: Yes (Other)
  Sender: FDA-Public Use
  Company Number: CA-CELLTRION INC.-2021CA001575

PATIENT

DRUGS (3)
  1. RITUXIMAB (UNKNOWN) [Suspect]
     Active Substance: RITUXIMAB
     Indication: PEMPHIGUS
     Dosage: UNK, 1 EVERY 1 WEEK
     Route: 065
  2. METHOTREXATE. [Suspect]
     Active Substance: METHOTREXATE
     Indication: PEMPHIGUS
     Dosage: 2.5 MILLIGRAM, 1 EVERY 1 DAY
     Route: 065
  3. PREDNISONE. [Suspect]
     Active Substance: PREDNISONE
     Indication: PEMPHIGUS
     Dosage: 25 MILLIGRAM, 1 EVERY 1 DAY
     Route: 065

REACTIONS (6)
  - Off label use [Unknown]
  - Disease progression [Unknown]
  - Mouth ulceration [Unknown]
  - Product use in unapproved indication [Unknown]
  - Pemphigus [Unknown]
  - Ulcer [Unknown]
